FAERS Safety Report 26129387 (Version 1)
Quarter: 2025Q4

REPORT INFORMATION
  Report Type: Spontaneous
  Country: AU (occurrence: None)
  Receive Date: 20251208
  Receipt Date: 20251208
  Transmission Date: 20260117
  Serious: Yes (Hospitalization)
  Sender: ORGANON
  Company Number: AU-GENERIC HEALTH PTY. LTD.-2025-09786

PATIENT
  Age: 59 Year
  Sex: Female

DRUGS (10)
  1. BETAMETHASONE DIPROPIONATE [Suspect]
     Active Substance: BETAMETHASONE DIPROPIONATE
     Indication: Rash pruritic
     Dosage: UNK
  2. BETAMETHASONE DIPROPIONATE [Suspect]
     Active Substance: BETAMETHASONE DIPROPIONATE
     Indication: Rash
     Dosage: UNK
  3. LORATADINE [Suspect]
     Active Substance: LORATADINE
     Indication: Rash pruritic
     Dosage: UNK
  4. LORATADINE [Suspect]
     Active Substance: LORATADINE
     Indication: Rash
     Dosage: UNK
  5. PREDNISONE [Suspect]
     Active Substance: PREDNISONE
     Indication: Rash
     Dosage: UNK
  6. PREDNISONE [Suspect]
     Active Substance: PREDNISONE
     Indication: Rash pruritic
     Dosage: 7.5 MILLIGRAM, QD
  7. ATORVASTATIN [Concomitant]
     Active Substance: ATORVASTATIN
     Indication: Product used for unknown indication
     Dosage: UNK
  8. EZETIMIBE [Concomitant]
     Active Substance: EZETIMIBE
     Indication: Product used for unknown indication
     Dosage: UNK
  9. HYDROCHLOROTHIAZIDE [Concomitant]
     Active Substance: HYDROCHLOROTHIAZIDE
     Indication: Product used for unknown indication
     Dosage: UNK
  10. IRBESARTAN [Concomitant]
     Active Substance: IRBESARTAN
     Indication: Product used for unknown indication
     Dosage: UNK

REACTIONS (1)
  - Drug ineffective [Unknown]
